FAERS Safety Report 8916569 (Version 3)
Quarter: 2012Q4

REPORT INFORMATION
  Report Type: 
  Country: JP (occurrence: JP)
  Receive Date: 20121120
  Receipt Date: 20121231
  Transmission Date: 20130627
  Serious: Yes (Other)
  Sender: FDA-Public Use
  Company Number: JP-009507513-1211JPN006868

PATIENT
  Age: 61 Year
  Sex: Male
  Weight: 79 kg

DRUGS (8)
  1. PEGINTRON [Suspect]
     Indication: CHRONIC HEPATITIS C
     Dosage: 1.5 Microgram per kilogram, qw
     Route: 058
     Dates: start: 20121102
  2. REBETOL [Suspect]
     Indication: CHRONIC HEPATITIS C
     Dosage: 1000 mg, qd
     Route: 048
     Dates: start: 20121102, end: 20121105
  3. REBETOL [Suspect]
     Dosage: 1000 mg, qd
     Route: 048
     Dates: start: 20121108
  4. TELAVIC [Suspect]
     Indication: CHRONIC HEPATITIS C
     Dosage: 1500 mg, qd
     Route: 048
     Dates: start: 20121102, end: 20121105
  5. URSO [Concomitant]
     Indication: CHRONIC HEPATITIS C
     Dosage: 600 mg, qd
     Route: 048
  6. GLYCYRON [Concomitant]
     Indication: CHRONIC HEPATITIS C
     Dosage: 9 DF, qd
     Route: 048
  7. MYSLEE [Concomitant]
     Dosage: 5 mg, qd
     Route: 048
     Dates: start: 20121031
  8. BLOPRESS [Concomitant]
     Dosage: 4 mg, qd, formulation por
     Route: 048
     Dates: start: 20121101

REACTIONS (1)
  - Drug eruption [Recovered/Resolved]
